FAERS Safety Report 9529620 (Version 2)
Quarter: 2013Q3

REPORT INFORMATION
  Report Type: Spontaneous
  Country: US (occurrence: US)
  Receive Date: 20130917
  Receipt Date: 20130917
  Transmission Date: 20140515
  Serious: Yes (Hospitalization, Other)
  Sender: FDA-Public Use
  Company Number: US-009507513-1201USA02844

PATIENT
  Sex: Female

DRUGS (4)
  1. FOSAMAX [Suspect]
     Indication: OSTEOPOROSIS
     Dosage: 70 MG, UNK
     Route: 048
     Dates: start: 199606, end: 200803
  2. FOSAMAX [Suspect]
     Indication: OSTEOPENIA
  3. FOSAMAX [Suspect]
     Indication: OSTEOPOROSIS
     Dosage: 70 MG, UNK
     Route: 048
     Dates: start: 20080331, end: 201109
  4. FOSAMAX [Suspect]
     Indication: OSTEOPENIA

REACTIONS (30)
  - Femur fracture [Recovered/Resolved]
  - Meniscus injury [Unknown]
  - Patellofemoral pain syndrome [Unknown]
  - Tenosynovitis stenosans [Unknown]
  - Fall [Unknown]
  - Fall [Unknown]
  - Low turnover osteopathy [Unknown]
  - Fall [Unknown]
  - Gingival disorder [Unknown]
  - Spinal compression fracture [Unknown]
  - Blood disorder [Recovered/Resolved]
  - Hypertension [Unknown]
  - Spinal osteoarthritis [Unknown]
  - Ligament sprain [Unknown]
  - Coccydynia [Unknown]
  - Dental caries [Unknown]
  - Hypothyroidism [Unknown]
  - Cervical polyp [Unknown]
  - Laceration [Unknown]
  - Haemorrhoids [Unknown]
  - Diverticulum intestinal [Unknown]
  - Large intestine polyp [Unknown]
  - Lipoma of breast [Unknown]
  - Pubis fracture [Unknown]
  - Cholelithiasis [Unknown]
  - Groin pain [Unknown]
  - Hepatic cyst [Unknown]
  - Pericardial effusion [Unknown]
  - Osteosclerosis [Unknown]
  - Spinal osteoarthritis [Unknown]
